FAERS Safety Report 26053058 (Version 1)
Quarter: 2025Q4

REPORT INFORMATION
  Report Type: Spontaneous
  Country: US (occurrence: US)
  Receive Date: 20251117
  Receipt Date: 20251117
  Transmission Date: 20260118
  Serious: No
  Sender: ABBVIE
  Company Number: US-ABBVIE-6546920

PATIENT
  Sex: Female

DRUGS (1)
  1. UBROGEPANT [Suspect]
     Active Substance: UBROGEPANT
     Indication: Migraine
     Route: 048

REACTIONS (1)
  - Raynaud^s phenomenon [Unknown]
